FAERS Safety Report 5763940-7 (Version None)
Quarter: 2008Q2

REPORT INFORMATION
  Report Type: 
  Country: None (occurrence: None)
  Receive Date: 20080602
  Receipt Date: 20070911
  Transmission Date: 20081010
  Serious: Yes (Death)
  Sender: FDA-Public Use
  Company Number: T200701082

PATIENT
  Age: 19 Year
  Sex: Male

DRUGS (1)
  1. METHADOSE [Suspect]
     Dosage: 50 MG, SINGLE
     Dates: start: 20050708, end: 20050708

REACTIONS (1)
  - ACCIDENTAL OVERDOSE [None]
